FAERS Safety Report 6297217-0 (Version None)
Quarter: 2009Q3

REPORT INFORMATION
  Report Type: 
  Country: None (occurrence: None)
  Receive Date: 20090804
  Receipt Date: 20090804
  Transmission Date: 20100115
  Serious: Yes (Disabling)
  Sender: FDA-Public Use
  Company Number: None

PATIENT
  Sex: Female
  Weight: 113.3993 kg

DRUGS (1)
  1. VENTOLIN HFA [Suspect]
     Indication: ASTHMA
     Dosage: 2 PUFF AS NEEDED 4 X DAILY
     Dates: start: 20090301

REACTIONS (3)
  - RASH [None]
  - THROAT TIGHTNESS [None]
  - TONGUE DISORDER [None]
